FAERS Safety Report 17487196 (Version 2)
Quarter: 2020Q2

REPORT INFORMATION
  Report Type: Report from Study
  Country: US (occurrence: US)
  Receive Date: 20200303
  Receipt Date: 20200601
  Transmission Date: 20200713
  Serious: Yes (Other)
  Sender: FDA-Public Use
  Company Number: US-TAKEDA-2020TUS012157

PATIENT
  Age: 71 Year
  Sex: Female

DRUGS (1)
  1. VEDOLIZUMAB [Suspect]
     Active Substance: VEDOLIZUMAB
     Indication: CROHN^S DISEASE
     Dosage: 300 MILLIGRAM, Q4WEEKS
     Route: 042
     Dates: start: 201707

REACTIONS (10)
  - Skin abrasion [Unknown]
  - Vulvovaginal pruritus [Unknown]
  - Epistaxis [Unknown]
  - Stomatitis [Unknown]
  - Chronic sinusitis [Recovered/Resolved]
  - Off label use [Unknown]
  - Nausea [Unknown]
  - Fall [Unknown]
  - Limb operation [Unknown]
  - Pruritus genital [Not Recovered/Not Resolved]

NARRATIVE: CASE EVENT DATE: 201707
